FAERS Safety Report 8613890-3 (Version None)
Quarter: 2012Q3

REPORT INFORMATION
  Report Type: 
  Country: None (occurrence: None)
  Receive Date: 20120823
  Receipt Date: 20120725
  Transmission Date: 20120928
  Serious: No
  Sender: FDA-Public Use
  Company Number: US-009507513-1207USA002093

PATIENT

DRUGS (3)
  1. INFERGEN [Suspect]
  2. PEGASYS [Suspect]
  3. THERAPY UNSPECIFIED [Suspect]

REACTIONS (1)
  - TREATMENT FAILURE [None]
